FAERS Safety Report 4273715-6 (Version None)
Quarter: 2004Q1

REPORT INFORMATION
  Report Type: 
  Country: None (occurrence: None)
  Receive Date: 20040119
  Receipt Date: 20040109
  Transmission Date: 20041129
  Serious: Yes (Other)
  Sender: FDA-Public Use
  Company Number: BR-ROCHE-355873

PATIENT
  Age: 50 Year
  Sex: Female
  Weight: 75 kg

DRUGS (2)
  1. RIVOTRIL [Suspect]
     Indication: PANIC DISORDER
     Route: 048
     Dates: start: 20030715
  2. TOLREST [Suspect]
     Indication: DRUG USE FOR UNKNOWN INDICATION
     Route: 048
     Dates: end: 20040115

REACTIONS (3)
  - ACNE [None]
  - ALOPECIA [None]
  - HYPERTHYROIDISM [None]
